FAERS Safety Report 9968241 (Version 1)
Quarter: 2014Q1

REPORT INFORMATION
  Report Type: Report from Study
  Country: US (occurrence: US)
  Receive Date: 20140306
  Receipt Date: 20140306
  Transmission Date: 20141002
  Serious: No
  Sender: FDA-Public Use
  Company Number: US-ABBVIE-13P-163-1140416-00

PATIENT
  Age: 68 Year
  Sex: Female

DRUGS (7)
  1. HUMIRA [Suspect]
     Indication: RHEUMATOID ARTHRITIS
     Dates: start: 20130716
  2. METHOTREXATE [Concomitant]
     Indication: RHEUMATOID ARTHRITIS
  3. PRAVACHOL [Concomitant]
     Indication: BLOOD CHOLESTEROL INCREASED
     Dosage: 20 MG DAILY
  4. DYAZIDE [Concomitant]
     Indication: HYPERTENSION
     Dosage: DAILY
  5. DYAZIDE [Concomitant]
     Indication: FLUID RETENTION
  6. ALBUTEROL [Concomitant]
     Indication: ASTHMA
  7. Q-VAR [Concomitant]
     Indication: ASTHMA

REACTIONS (1)
  - Injection site bruising [Not Recovered/Not Resolved]
